FAERS Safety Report 4643561-X (Version None)
Quarter: 2005Q2

REPORT INFORMATION
  Report Type: 
  Country: None (occurrence: None)
  Receive Date: 20050425
  Receipt Date: 20050321
  Transmission Date: 20051028
  Serious: Yes (Hospitalization)
  Sender: FDA-Public Use
  Company Number: 200512644GDDC

PATIENT
  Age: 47 Year
  Sex: Female
  Weight: 48 kg

DRUGS (9)
  1. ARAVA [Suspect]
     Indication: RHEUMATOID ARTHRITIS
     Route: 048
     Dates: start: 20041127, end: 20050318
  2. FUROSEMIDE [Suspect]
     Indication: OEDEMA
     Dosage: DOSE: 1/2
     Route: 048
     Dates: start: 20050101, end: 20050201
  3. AAS [Suspect]
     Indication: THROMBOSIS
     Route: 048
     Dates: start: 20050101, end: 20050201
  4. ATENOLOL [Suspect]
     Indication: ANGINA PECTORIS
     Route: 048
     Dates: start: 20050101, end: 20050201
  5. DEKATIN [Suspect]
     Indication: CARDIOMYOPATHY
     Route: 048
     Dates: start: 20050101
  6. TIBOLONE [Concomitant]
     Route: 048
     Dates: start: 20010101
  7. FLANAX [Concomitant]
     Indication: RHEUMATOID ARTHRITIS
     Route: 048
     Dates: start: 20041127, end: 20041226
  8. AZULFIDINE [Concomitant]
     Indication: PROPHYLAXIS
     Route: 048
     Dates: start: 20041127, end: 20050127
  9. CYANOCOBALAMIN/PYRIDOXIN HCL/THIAMINE HCL [Concomitant]
     Indication: CARDIOMYOPATHY
     Route: 030
     Dates: start: 20041127, end: 20050212

REACTIONS (27)
  - ALOPECIA [None]
  - APHTHOUS STOMATITIS [None]
  - ARRHYTHMIA [None]
  - BLOOD PRESSURE INCREASED [None]
  - CHEST PAIN [None]
  - DYSGEUSIA [None]
  - HAEMATOMA [None]
  - HEADACHE [None]
  - HEART RATE INCREASED [None]
  - HYPERSENSITIVITY [None]
  - LARYNGITIS [None]
  - MUCOUS MEMBRANE DISORDER [None]
  - MYOCARDIAL INFARCTION [None]
  - MYOCARDITIS [None]
  - MYOCARDITIS RHEUMATIC [None]
  - NAUSEA [None]
  - NO ADVERSE EFFECT [None]
  - OEDEMA [None]
  - PAIN [None]
  - PERICARDIAL EFFUSION [None]
  - PHARYNGITIS [None]
  - PRURITUS GENERALISED [None]
  - RASH MACULAR [None]
  - TACHYCARDIA [None]
  - VARICOSE VEIN [None]
  - VENTRICULAR HYPOKINESIA [None]
  - VIRAL MYOCARDITIS [None]
